FAERS Safety Report 4608130-6 (Version None)
Quarter: 2005Q2

REPORT INFORMATION
  Report Type: 
  Country: None (occurrence: None)
  Receive Date: 20050301
  Receipt Date: 20040316
  Transmission Date: 20051028
  Serious: Yes (Other)
  Sender: FDA-Public Use
  Company Number: BDI-005952

PATIENT
  Age: 40 Year
  Sex: Female

DRUGS (2)
  1. ISOVUE-300 [Suspect]
     Indication: ABDOMINAL PAIN LOWER
     Dosage: 110 ML ONCE IV
     Route: 042
     Dates: start: 20040301, end: 20040301
  2. ISOVUE-300 [Suspect]
     Indication: COMPUTERISED TOMOGRAM
     Dosage: 110 ML ONCE IV
     Route: 042
     Dates: start: 20040301, end: 20040301

REACTIONS (5)
  - CHEST DISCOMFORT [None]
  - EYE SWELLING [None]
  - OCULAR HYPERAEMIA [None]
  - UPPER RESPIRATORY TRACT CONGESTION [None]
  - URTICARIA [None]
